FAERS Safety Report 9236494 (Version 5)
Quarter: 2013Q3

REPORT INFORMATION
  Report Type: Spontaneous
  Country: DK (occurrence: FR)
  Receive Date: 20130417
  Receipt Date: 20130711
  Transmission Date: 20140515
  Serious: Yes (Disabling)
  Sender: FDA-Public Use
  Company Number: FR-FRI-1000042316

PATIENT
  Age: 75 Year
  Sex: Female
  Weight: 50 kg

DRUGS (6)
  1. ESCITALOPRAM [Suspect]
     Indication: DEPRESSION
     Dosage: 5 MG
     Route: 048
     Dates: start: 201011
  2. ESCITALOPRAM [Suspect]
     Dosage: 10 MG
     Route: 048
     Dates: end: 20110923
  3. KARDEGIC [Suspect]
     Dosage: 75 MG
     Route: 048
     Dates: start: 201011, end: 20110923
  4. KARDEGIC [Suspect]
     Dosage: 160 MG
     Route: 048
  5. KARDEGIC [Suspect]
     Dosage: 75 MG
     Route: 048
     Dates: end: 20110923
  6. CRESTOR [Concomitant]
     Route: 048
     Dates: start: 20110104

REACTIONS (2)
  - Haemorrhagic stroke [Not Recovered/Not Resolved]
  - Macular degeneration [Unknown]
